FAERS Safety Report 16487545 (Version 1)
Quarter: 2019Q3

REPORT INFORMATION
  Report Type: Spontaneous
  Country: US (occurrence: US)
  Receive Date: 20190626
  Receipt Date: 20190626
  Transmission Date: 20191004
  Serious: Yes (Hospitalization)
  Sender: FDA-Public Use
  Company Number: None

PATIENT
  Age: 80 Year
  Sex: Female

DRUGS (16)
  1. PROMETHAGAN SUP 12.5 MG [Concomitant]
  2. METOCLOPRAM TAB 5 MG [Concomitant]
  3. AMOXICILLIN CAP 500 MG [Concomitant]
  4. ESTRADIOL TAB 0.5 MG [Concomitant]
  5. TOBI PODHALER [Suspect]
     Active Substance: TOBRAMYCIN
     Indication: BRONCHIECTASIS
     Route: 048
     Dates: start: 20190220
  6. ACYCLOVIR TAB 400 MG [Concomitant]
  7. NITROFURANTN CAP 100 MG [Concomitant]
  8. FENTANYL DIS 75 MCG/HR [Concomitant]
  9. CLOTRIMAZOLE LOZ 10 MG [Concomitant]
  10. PANTOPRAZOLE TAB 20 MG [Concomitant]
  11. FLUCONAZOLE TAB 150 MG [Concomitant]
  12. HYPERAL NEB 7% [Concomitant]
  13. HYDROMORPHON TAB 2 MG [Concomitant]
  14. ONDANSETRON TAB 4 MG ODT [Concomitant]
  15. OMEPRAZOLE CAP 40 MG [Concomitant]
  16. METRONIDAZOL TAB 500 MG [Concomitant]

REACTIONS (2)
  - Cystitis [None]
  - Dysphonia [None]

NARRATIVE: CASE EVENT DATE: 20190525
